FAERS Safety Report 5269186-3 (Version None)
Quarter: 2007Q1

REPORT INFORMATION
  Report Type: 
  Country: None (occurrence: None)
  Receive Date: 20070319
  Receipt Date: 20070306
  Transmission Date: 20070707
  Serious: Yes (Other)
  Sender: FDA-Public Use
  Company Number: US-SHR-US-2007-008041

PATIENT
  Age: 59 Year
  Sex: Female

DRUGS (4)
  1. BETASERON [Suspect]
     Dosage: 8 MIU, EVERY 2D
     Route: 058
     Dates: start: 19940513
  2. LOTREL [Concomitant]
  3. SYNTHROID [Concomitant]
  4. CENTRUM [Concomitant]

REACTIONS (7)
  - BLOOD PRESSURE INCREASED [None]
  - CHILLS [None]
  - LYMPHOMA [None]
  - MALAISE [None]
  - NASOPHARYNGEAL CANCER [None]
  - PARAESTHESIA [None]
  - PHARYNGOLARYNGEAL PAIN [None]
